FAERS Safety Report 16639893 (Version 3)
Quarter: 2019Q3

REPORT INFORMATION
  Report Type: Spontaneous
  Country: US (occurrence: US)
  Receive Date: 20190727
  Receipt Date: 20190927
  Transmission Date: 20191004
  Serious: Yes (Death, Other)
  Sender: FDA-Public Use
  Company Number: US-UNITED THERAPEUTICS-UNT-2019-010818

PATIENT
  Age: 76 Year
  Sex: Male
  Weight: 70.3 kg

DRUGS (8)
  1. SILDENAFIL. [Concomitant]
     Active Substance: SILDENAFIL
     Indication: PRODUCT USED FOR UNKNOWN INDICATION
     Dosage: 20 MG, TID
     Route: 065
  2. TYVASO [Suspect]
     Active Substance: TREPROSTINIL
     Dosage: UNK
  3. TYVASO [Suspect]
     Active Substance: TREPROSTINIL
     Dosage: 42 ?G, UNK
     Dates: start: 20190628
  4. OFEV [Suspect]
     Active Substance: NINTEDANIB
     Indication: INTERSTITIAL LUNG DISEASE
     Dosage: 150 MG, QD
     Route: 065
     Dates: end: 20190802
  5. TYVASO [Suspect]
     Active Substance: TREPROSTINIL
     Dosage: 54 ?G, UNK
     Dates: start: 20190627
  6. TYVASO [Suspect]
     Active Substance: TREPROSTINIL
     Dosage: 36 ?G, UNK
  7. LASIX [Concomitant]
     Active Substance: FUROSEMIDE
     Indication: PRODUCT USED FOR UNKNOWN INDICATION
     Dosage: 20 MG, BID
     Route: 065
  8. TYVASO [Suspect]
     Active Substance: TREPROSTINIL
     Indication: PULMONARY ARTERIAL HYPERTENSION
     Dosage: 18-54 ?G, QID
     Dates: start: 20190607, end: 20190722

REACTIONS (18)
  - Respiratory failure [Fatal]
  - Decreased appetite [Unknown]
  - Therapy non-responder [Unknown]
  - Abdominal pain [Unknown]
  - Weight decreased [Unknown]
  - Disease progression [Fatal]
  - Panic attack [Unknown]
  - Dyspnoea [Not Recovered/Not Resolved]
  - Dyspnoea at rest [Not Recovered/Not Resolved]
  - Crepitations [Unknown]
  - General physical health deterioration [Fatal]
  - Cough [Unknown]
  - Asthenia [Unknown]
  - Constipation [Unknown]
  - Rales [Unknown]
  - Pain [Unknown]
  - Dyspnoea exertional [Unknown]
  - Productive cough [Unknown]

NARRATIVE: CASE EVENT DATE: 2019
